FAERS Safety Report 13064671 (Version 1)
Quarter: 2016Q4

REPORT INFORMATION
  Report Type: Spontaneous
  Country: US (occurrence: US)
  Receive Date: 20161226
  Receipt Date: 20161226
  Transmission Date: 20170207
  Serious: Yes (Hospitalization)
  Sender: FDA-Public Use
  Company Number: None

PATIENT
  Age: 20 Year
  Sex: Male
  Weight: 95.4 kg

DRUGS (4)
  1. CARDIZEM [Concomitant]
     Active Substance: DILTIAZEM HYDROCHLORIDE
  2. ALPRAZOLAM. [Concomitant]
     Active Substance: ALPRAZOLAM
  3. NORTIPTYLIN [Concomitant]
  4. PRISTIQ EXTENDED-RELEASE [Suspect]
     Active Substance: DESVENLAFAXINE SUCCINATE
     Indication: DEPRESSION
     Dosage: ?          OTHER ROUTE:BY MOUTH?
     Route: 048
     Dates: start: 20160921, end: 20161226

REACTIONS (4)
  - Chest pain [None]
  - Palpitations [None]
  - Heart rate increased [None]
  - Blood pressure decreased [None]

NARRATIVE: CASE EVENT DATE: 20161221
